FAERS Safety Report 16819092 (Version 1)
Quarter: 2019Q3

REPORT INFORMATION
  Report Type: Spontaneous
  Country: SE (occurrence: SE)
  Receive Date: 20190917
  Receipt Date: 20190917
  Transmission Date: 20191005
  Serious: Yes (Other)
  Sender: FDA-Public Use
  Company Number: SE-MYLANLABS-2019M1086913

PATIENT
  Age: 6 Week

DRUGS (5)
  1. ENGERIX B VACCIN [Concomitant]
     Indication: PROPHYLAXIS
  2. TENOFOVIR [Suspect]
     Active Substance: TENOFOVIR
     Indication: ANTIVIRAL TREATMENT
  3. HEPATITIS B VACCINE [Suspect]
     Active Substance: HEPATITIS B VIRUS VACCINE
     Indication: PROPHYLAXIS
  4. ENGERIX B VACCIN [Concomitant]
     Indication: PROPHYLAXIS
  5. HEPATITIS B IMMUNE GLOBULIN [Concomitant]
     Active Substance: HUMAN HEPATITIS B VIRUS IMMUNE GLOBULIN
     Indication: PROPHYLAXIS

REACTIONS (3)
  - Hepatitis B [Recovered/Resolved]
  - Foetal exposure during pregnancy [Unknown]
  - Vertical infection transmission [Unknown]
